FAERS Safety Report 17438614 (Version 41)
Quarter: 2024Q2

REPORT INFORMATION
  Report Type: Report from Study
  Country: US (occurrence: US)
  Receive Date: 20200220
  Receipt Date: 20240523
  Transmission Date: 20240716
  Serious: Yes (Hospitalization, Other)
  Sender: FDA-Public Use
  Company Number: US-SHIRE-US202006432

PATIENT
  Age: 57 Year
  Sex: Female
  Weight: 101 kg

DRUGS (54)
  1. HUMAN IMMUNOGLOBULIN G [Suspect]
     Active Substance: HUMAN IMMUNOGLOBULIN G
     Indication: Immunodeficiency common variable
     Dosage: 12 GRAM, 1/WEEK
     Route: 058
     Dates: start: 20170217
  2. HUMAN IMMUNOGLOBULIN G [Suspect]
     Active Substance: HUMAN IMMUNOGLOBULIN G
     Dosage: 12 GRAM, 1/WEEK
     Route: 058
     Dates: start: 20170802
  3. HUMAN IMMUNOGLOBULIN G [Suspect]
     Active Substance: HUMAN IMMUNOGLOBULIN G
     Dosage: 12 GRAM, 1/WEEK
     Route: 058
     Dates: start: 20170804
  4. HUMAN IMMUNOGLOBULIN G [Suspect]
     Active Substance: HUMAN IMMUNOGLOBULIN G
     Dosage: 12 GRAM, 1/WEEK
     Route: 058
  5. HUMAN IMMUNOGLOBULIN G [Suspect]
     Active Substance: HUMAN IMMUNOGLOBULIN G
     Dosage: 12 GRAM, 1/WEEK
     Route: 058
  6. DIPHENHYDRAMINE [Concomitant]
     Active Substance: DIPHENHYDRAMINE
     Dosage: UNK
     Route: 065
  7. ACETAMINOPHEN [Concomitant]
     Active Substance: ACETAMINOPHEN
     Dosage: UNK
     Route: 065
  8. PNEUMOVAX 23 [Concomitant]
     Active Substance: PNEUMOCOCCAL VACCINE, POLYVALENT 23
     Dosage: UNK
     Route: 065
  9. XANAX [Concomitant]
     Active Substance: ALPRAZOLAM
     Dosage: UNK
     Route: 065
  10. DIPHENHYDRAMINE HYDROCHLORIDE [Concomitant]
     Active Substance: DIPHENHYDRAMINE HYDROCHLORIDE
     Dosage: UNK
     Route: 065
  11. MAXALT [Concomitant]
     Active Substance: RIZATRIPTAN BENZOATE
     Dosage: UNK
     Route: 065
  12. POTASSIUM CHLORIDE [Concomitant]
     Active Substance: POTASSIUM CHLORIDE
     Dosage: UNK
     Route: 065
  13. MESALAMINE [Concomitant]
     Active Substance: MESALAMINE
     Dosage: UNK
     Route: 065
  14. EPINEPHRINE [Concomitant]
     Active Substance: EPINEPHRINE
     Dosage: UNK
     Route: 065
  15. NYSTATIN [Concomitant]
     Active Substance: NYSTATIN
     Dosage: UNK
     Route: 048
  16. AZITHROMYCIN [Concomitant]
     Active Substance: AZITHROMYCIN
     Dosage: UNK
     Route: 065
  17. VITAMIN D [Concomitant]
     Active Substance: VITAMIN D NOS
     Dosage: UNK
     Route: 065
  18. CARAFATE [Concomitant]
     Active Substance: SUCRALFATE
     Dosage: UNK
     Route: 048
  19. ROWASA [Concomitant]
     Active Substance: MESALAMINE
     Dosage: UNK
     Route: 065
  20. BREO ELLIPTA [Concomitant]
     Active Substance: FLUTICASONE FUROATE\VILANTEROL TRIFENATATE
     Dosage: UNK
     Route: 065
  21. LASIX [Concomitant]
     Active Substance: FUROSEMIDE
     Dosage: UNK
     Route: 065
  22. ALKA-SELTZER PLUS COLD AND COUGH [Concomitant]
     Active Substance: ACETAMINOPHEN\CHLORPHENIRAMINE\DEXTROMETHORPHAN\PHENYLEPHRINE
     Dosage: UNK
     Route: 065
  23. PEPTO-BISMOL [Concomitant]
     Active Substance: BISMUTH SUBSALICYLATE
     Dosage: UNK
     Route: 065
  24. FLUZONE QUADRIVALENT NOS [Concomitant]
     Active Substance: INFLUENZA A VIRUS A/CALIFORNIA/7/2009 X-179A (H1N1) ANTIGEN (FORMALDEHYDE INACTIVATED)\INFLUENZA A V
     Dosage: UNK
     Route: 065
  25. HUMULIN N [Concomitant]
     Active Substance: INSULIN HUMAN
     Dosage: UNK
     Route: 065
  26. PREDNISONE [Concomitant]
     Active Substance: PREDNISONE
     Dosage: UNK
     Route: 065
  27. ASPIRIN [Concomitant]
     Active Substance: ASPIRIN
     Dosage: UNK
     Route: 065
  28. GABAPENTIN [Concomitant]
     Active Substance: GABAPENTIN
     Dosage: UNK
     Route: 065
  29. ALBUTEROL SULFATE [Concomitant]
     Active Substance: ALBUTEROL SULFATE
     Dosage: UNK
     Route: 065
  30. ULORIC [Concomitant]
     Active Substance: FEBUXOSTAT
     Dosage: UNK
     Route: 065
  31. CLONIDINE HYDROCHLORIDE [Concomitant]
     Active Substance: CLONIDINE HYDROCHLORIDE
     Dosage: UNK
     Route: 065
  32. MINOCYCLINE [Concomitant]
     Active Substance: MINOCYCLINE HYDROCHLORIDE
     Dosage: UNK
     Route: 065
  33. IMODIUM [Concomitant]
     Active Substance: LOPERAMIDE HYDROCHLORIDE
     Dosage: UNK
     Route: 065
  34. LIDOCAINE AND PRILOCAINE [Concomitant]
     Active Substance: LIDOCAINE\PRILOCAINE
     Dosage: UNK
     Route: 065
  35. LIDODERM [Concomitant]
     Active Substance: LIDOCAINE
     Dosage: UNK
     Route: 065
  36. KETOROLAC TROMETHAMINE [Concomitant]
     Active Substance: KETOROLAC TROMETHAMINE
     Dosage: UNK
     Route: 065
  37. FLEXERIL [Concomitant]
     Active Substance: CYCLOBENZAPRINE HYDROCHLORIDE
     Dosage: UNK
     Route: 065
  38. MIGRANAL [Concomitant]
     Active Substance: DIHYDROERGOTAMINE MESYLATE
     Dosage: UNK
     Route: 065
  39. SODIUM CHLORIDE [Concomitant]
     Active Substance: SODIUM CHLORIDE
     Dosage: UNK
     Route: 065
  40. CINNAMON [Concomitant]
     Active Substance: CINNAMON
     Dosage: UNK
     Route: 065
  41. HYDROCORTISONE [Concomitant]
     Active Substance: HYDROCORTISONE\HYDROCORTISONE ACETATE
     Dosage: UNK
     Route: 065
  42. MIRALAX [Concomitant]
     Active Substance: POLYETHYLENE GLYCOL 3350
     Dosage: UNK
     Route: 065
  43. Lmx [Concomitant]
     Dosage: UNK
     Route: 065
  44. NOVOLOG [Concomitant]
     Active Substance: INSULIN ASPART
     Dosage: UNK
     Route: 065
  45. ALOE [Concomitant]
     Active Substance: ALOE
     Dosage: UNK
     Route: 065
  46. TESSALON [Concomitant]
     Active Substance: BENZONATATE
     Dosage: UNK
     Route: 065
  47. VENTOLIN [Concomitant]
     Active Substance: ALBUTEROL SULFATE
     Dosage: UNK
     Route: 065
  48. A AND D ORIGINAL [Concomitant]
     Active Substance: LANOLIN\PETROLATUM
     Dosage: UNK
     Route: 065
  49. COLD COUGH [Concomitant]
     Dosage: UNK
     Route: 065
  50. VITAMIN D2 [Concomitant]
     Active Substance: ERGOCALCIFEROL
     Dosage: UNK
     Route: 065
  51. LACIDIPINE [Concomitant]
     Active Substance: LACIDIPINE
     Dosage: UNK
     Route: 065
  52. ALBUTEROL [Concomitant]
     Active Substance: ALBUTEROL
     Dosage: UNK
     Route: 065
  53. OXYBUTYNIN CHLORIDE [Concomitant]
     Active Substance: OXYBUTYNIN CHLORIDE
     Dosage: UNK
     Route: 065
  54. CYCLOBENZAPRINE HYDROCHLORIDE [Concomitant]
     Active Substance: CYCLOBENZAPRINE HYDROCHLORIDE
     Dosage: UNK
     Route: 065

REACTIONS (68)
  - Weight increased [Unknown]
  - Lip oedema [Unknown]
  - Asthma [Unknown]
  - Hyponatraemia [Unknown]
  - Pneumonia [Unknown]
  - Lower respiratory tract infection [Unknown]
  - Blood sodium decreased [Unknown]
  - Craniofacial fracture [Unknown]
  - Kidney infection [Unknown]
  - Haemorrhage [Unknown]
  - Reflux nephropathy [Unknown]
  - Vascular device infection [Unknown]
  - Cataract [Unknown]
  - Erosive oesophagitis [Unknown]
  - Herpes zoster infection neurological [Unknown]
  - Cardiac failure [Unknown]
  - Oedema peripheral [Unknown]
  - Dyspnoea [Unknown]
  - Bone disorder [Unknown]
  - Respiratory tract infection viral [Unknown]
  - Fluid retention [Unknown]
  - Blood glucose increased [Unknown]
  - Secretion discharge [Unknown]
  - Renal cyst [Unknown]
  - Drug hypersensitivity [Unknown]
  - Exostosis [Unknown]
  - Sinusitis [Recovered/Resolved]
  - Fall [Unknown]
  - Joint injury [Unknown]
  - Gastroenteritis viral [Unknown]
  - Urinary tract infection [Unknown]
  - Ligament injury [Unknown]
  - Bladder disorder [Unknown]
  - Road traffic accident [Unknown]
  - Gout [Unknown]
  - Post-traumatic stress disorder [Unknown]
  - Ulcer [Unknown]
  - Obstructive airways disorder [Unknown]
  - Sinus congestion [Unknown]
  - Ear infection [Unknown]
  - Tooth infection [Unknown]
  - Dermatitis contact [Unknown]
  - Upper respiratory tract infection [Unknown]
  - Insurance issue [Unknown]
  - Infusion site mass [Unknown]
  - Depression [Unknown]
  - Illness [Unknown]
  - Gastrooesophageal reflux disease [Unknown]
  - Paranasal sinus hypersecretion [Unknown]
  - Device dislocation [Unknown]
  - Respiratory tract infection [Recovered/Resolved]
  - Infusion site discharge [Unknown]
  - Rosacea [Unknown]
  - Balance disorder [Unknown]
  - Contusion [Unknown]
  - Malaise [Unknown]
  - Anxiety [Unknown]
  - Infusion site swelling [Unknown]
  - Arthralgia [Unknown]
  - Urticaria [Unknown]
  - Fatigue [Unknown]
  - Rash [Unknown]
  - Fluid imbalance [Unknown]
  - Blood glucose decreased [Unknown]
  - Blood potassium abnormal [Unknown]
  - Cardiac disorder [Unknown]
  - Blood pressure fluctuation [Unknown]
  - Product dose omission issue [Unknown]

NARRATIVE: CASE EVENT DATE: 20200131
